FAERS Safety Report 8317205-X (Version None)
Quarter: 2012Q2

REPORT INFORMATION
  Report Type: 
  Country: None (occurrence: None)
  Receive Date: 20120427
  Receipt Date: 20120418
  Transmission Date: 20120825
  Serious: Yes (Other)
  Sender: FDA-Public Use
  Company Number: DE-ACCORD-013266

PATIENT
  Age: 27 Year
  Sex: Male

DRUGS (4)
  1. CYCLOPHOSPHAMIDE [Suspect]
  2. TACROLIMUS [Suspect]
     Indication: IMMUNOSUPPRESSION
  3. MYCOPHENOLATE MOFETIL [Suspect]
     Indication: IMMUNOSUPPRESSION
  4. ANTI-THYMOCYTE GLOBULIN EQUINE NOS [Suspect]
     Indication: IMMUNOSUPPRESSION

REACTIONS (2)
  - KAPOSI'S SARCOMA [None]
  - OFF LABEL USE [None]
